FAERS Safety Report 9591284 (Version 1)
Quarter: 2013Q4

REPORT INFORMATION
  Report Type: Spontaneous
  Country: US (occurrence: US)
  Receive Date: 20131003
  Receipt Date: 20131003
  Transmission Date: 20140711
  Serious: No
  Sender: FDA-Public Use
  Company Number: US-AMGEN-USASP2012080789

PATIENT
  Sex: Female

DRUGS (7)
  1. ENBREL [Suspect]
     Indication: PRODUCT USED FOR UNKNOWN INDICATION
     Dosage: 50 MG, WEEKLY
     Route: 058
  2. LOTENSIN                           /00498401/ [Concomitant]
     Dosage: 10 MG, UNK
  3. LEXAPRO [Concomitant]
     Dosage: 20 MG, UNK
  4. PROPRANOLOL [Concomitant]
     Dosage: 10 MG, UNK
  5. CALCIUM +D                         /00944201/ [Concomitant]
     Dosage: UNK
  6. VITAMIN D                          /00107901/ [Concomitant]
     Dosage: 1000 UNIT, UNK
  7. VITAMIN B-12 [Concomitant]
     Dosage: 1000 CR, UNK

REACTIONS (1)
  - Drug effect decreased [Unknown]
